FAERS Safety Report 19985009 (Version 7)
Quarter: 2022Q2

REPORT INFORMATION
  Report Type: Report from Study
  Country: CA (occurrence: CA)
  Receive Date: 20211021
  Receipt Date: 20220406
  Transmission Date: 20220721
  Serious: Yes (Other)
  Sender: FDA-Public Use
  Company Number: CA-OTSUKA-2021_024873

PATIENT
  Age: 90 Year
  Sex: Male

DRUGS (4)
  1. CEDAZURIDINE\DECITABINE [Suspect]
     Active Substance: CEDAZURIDINE\DECITABINE
     Indication: Myelodysplastic syndrome
     Dosage: (35 MG OF DECITABINE AND 100 MG OF CEDAZURIDINE), UNK
     Route: 065
     Dates: start: 20210517
  2. CEDAZURIDINE\DECITABINE [Suspect]
     Active Substance: CEDAZURIDINE\DECITABINE
     Dosage: 35 MG OF DECITABINE AND 100 MG OF CEDAZURIDINE),2 PILL BY CYCLE
     Route: 065
  3. CEDAZURIDINE\DECITABINE [Suspect]
     Active Substance: CEDAZURIDINE\DECITABINE
     Dosage: 35 MG OF DECITABINE AND 100 MG OF CEDAZURIDINE),3 DAYS MONTHLY
     Route: 065
  4. CEDAZURIDINE\DECITABINE [Suspect]
     Active Substance: CEDAZURIDINE\DECITABINE
     Dosage: 35 MG OF DECITABINE AND 100 MG OF CEDAZURIDINE),2 DAYS MONTHLY
     Route: 065

REACTIONS (10)
  - Transfusion [Unknown]
  - Biopsy bone marrow [Unknown]
  - Blood product transfusion dependent [Unknown]
  - Neutropenia [Unknown]
  - Blood test abnormal [Unknown]
  - General physical health deterioration [Unknown]
  - Eastern Cooperative Oncology Group performance status worsened [Unknown]
  - Full blood count abnormal [Unknown]
  - Product use issue [Unknown]
  - Therapy interrupted [Unknown]

NARRATIVE: CASE EVENT DATE: 20220131
